FAERS Safety Report 4631637-2 (Version None)
Quarter: 2005Q2

REPORT INFORMATION
  Report Type: 
  Country: None (occurrence: None)
  Receive Date: 20050407
  Receipt Date: 20050324
  Transmission Date: 20051028
  Serious: Yes (Hospitalization)
  Sender: FDA-Public Use
  Company Number: 213387

PATIENT
  Sex: Male

DRUGS (1)
  1. RAPTIVA [Suspect]
     Dosage: SUBCUTANEOUS
     Route: 058
     Dates: end: 20050315

REACTIONS (2)
  - C-REACTIVE PROTEIN INCREASED [None]
  - HYPOAESTHESIA [None]
